FAERS Safety Report 7368827-4 (Version None)
Quarter: 2011Q1

REPORT INFORMATION
  Report Type: 
  Country: None (occurrence: None)
  Receive Date: 20110323
  Receipt Date: 20100913
  Transmission Date: 20110831
  Serious: Yes (Other)
  Sender: FDA-Public Use
  Company Number: US-BAYER-201029807NA

PATIENT
  Sex: Female
  Weight: 77.098 kg

DRUGS (5)
  1. YAZ [Suspect]
     Indication: CONTRACEPTION
     Dosage: UNK
     Route: 048
     Dates: start: 20070409, end: 20091001
  2. PHENTERMINE [Concomitant]
     Indication: WEIGHT DECREASED
     Dosage: UNK
     Route: 048
     Dates: start: 20070618, end: 20070904
  3. IBUPROFEN [Concomitant]
     Dosage: UNK
     Dates: start: 20010101
  4. CLARITIN [Concomitant]
     Indication: HYPERSENSITIVITY
  5. NEXIUM [Concomitant]
     Indication: GASTROOESOPHAGEAL REFLUX DISEASE
     Dosage: UNK
     Route: 048
     Dates: start: 20070521, end: 20081113

REACTIONS (6)
  - PAIN [None]
  - CHOLECYSTITIS [None]
  - ABDOMINAL PAIN [None]
  - ABDOMINAL PAIN UPPER [None]
  - CHOLELITHIASIS [None]
  - DEEP VEIN THROMBOSIS [None]
